FAERS Safety Report 7270997-3 (Version None)
Quarter: 2011Q1

REPORT INFORMATION
  Report Type: 
  Country: None (occurrence: None)
  Receive Date: 20110202
  Receipt Date: 20110125
  Transmission Date: 20110831
  Serious: Yes (Other)
  Sender: FDA-Public Use
  Company Number: GR-PFIZER INC-2011018128

PATIENT
  Age: 36 Year
  Sex: Female
  Weight: 57 kg

DRUGS (9)
  1. GABAPENTIN [Suspect]
     Indication: INTERVERTEBRAL DISC PROTRUSION
     Dosage: 1 DF (300 MG), 1X/DAY
     Route: 048
     Dates: start: 20100420, end: 20100425
  2. CELEBREX [Suspect]
     Indication: INTERVERTEBRAL DISC PROTRUSION
     Dosage: 1 DF (100 MG), 1X/DAY, TAKEN IN THE MORNING
     Route: 048
     Dates: start: 20100413, end: 20100423
  3. MELOXICAM [Suspect]
     Indication: INTERVERTEBRAL DISC PROTRUSION
     Dosage: 1 DF (15 MG), UNK
     Route: 048
     Dates: start: 20100410, end: 20100410
  4. PRILOSEC [Suspect]
     Indication: PROPHYLAXIS AGAINST GASTROINTESTINAL ULCER
     Dosage: 1 DF (20 MG), 1X/DAY
     Route: 048
     Dates: start: 20100409, end: 20100419
  5. NORGESIC TABLETS [Suspect]
     Indication: INTERVERTEBRAL DISC PROTRUSION
     Dosage: 1 DF (35-450 MG/TAB), UNK
     Route: 048
     Dates: start: 20100409, end: 20100411
  6. DYNASTAT [Suspect]
     Indication: INTERVERTEBRAL DISC PROTRUSION
     Dosage: 1 DF (40 MG), 1X/DAY TAKEN IN THE EVENING
     Route: 030
     Dates: start: 20100413, end: 20100423
  7. CELESTONE SOLUSPAN [Suspect]
     Indication: INTERVERTEBRAL DISC PROTRUSION
     Dosage: 1 DF(3/3 MG), UNK
     Route: 030
     Dates: start: 20100413, end: 20100423
  8. FELDENE [Suspect]
     Indication: INTERVERTEBRAL DISC PROTRUSION
     Dosage: 1 DF (10 MG), UNK
     Route: 048
     Dates: start: 20100420, end: 20100425
  9. PANTOPRAZOLE [Suspect]
     Dosage: UNK
     Dates: start: 20100401

REACTIONS (1)
  - ABORTION SPONTANEOUS [None]
